FAERS Safety Report 20657678 (Version 2)
Quarter: 2022Q2

REPORT INFORMATION
  Report Type: Report from Study
  Country: DE (occurrence: DE)
  Receive Date: 20220331
  Receipt Date: 20220421
  Transmission Date: 20220721
  Serious: Yes (Death, Other)
  Sender: FDA-Public Use
  Company Number: DE-BRISTOL-MYERS SQUIBB COMPANY-2022-012414

PATIENT
  Age: 70 Year
  Sex: Male

DRUGS (18)
  1. NIVOLUMAB [Suspect]
     Active Substance: NIVOLUMAB
     Indication: Squamous cell carcinoma of head and neck
     Dosage: FREQUENCY: BIWEEKLY
     Route: 042
     Dates: start: 20200117, end: 20200317
  2. ASPIRIN [Concomitant]
     Active Substance: ASPIRIN
     Indication: Cardiovascular disorder
     Route: 065
  3. ASPIRIN [Concomitant]
     Active Substance: ASPIRIN
     Indication: Cerebrovascular disorder
  4. AMLODIPINE BESYLATE [Concomitant]
     Active Substance: AMLODIPINE BESYLATE
     Indication: Cardiovascular disorder
     Route: 065
  5. AMLODIPINE BESYLATE [Concomitant]
     Active Substance: AMLODIPINE BESYLATE
     Indication: Cerebrovascular disorder
  6. CANDESARTAN [Concomitant]
     Active Substance: CANDESARTAN
     Indication: Cardiovascular disorder
     Route: 065
  7. CANDESARTAN [Concomitant]
     Active Substance: CANDESARTAN
     Indication: Cerebrovascular disorder
  8. Thyroxjod (levothyroxine, iodine) [Concomitant]
     Indication: Metabolic disorder
     Route: 065
  9. Thyroxjod (levothyroxine, iodine) [Concomitant]
     Route: 065
  10. Novamisulfon 500 mg (metamizole) [Concomitant]
     Indication: Neoplasm
     Route: 065
  11. PANTOZOL [Concomitant]
     Active Substance: PANTOPRAZOLE SODIUM
     Indication: Prophylaxis
     Route: 065
  12. CALCIMAGON D3 UNO [Concomitant]
     Indication: Prophylaxis
     Route: 065
  13. CALCIMAGON D3 UNO [Concomitant]
     Route: 065
  14. DENOSUMAB [Concomitant]
     Active Substance: DENOSUMAB
     Indication: Neoplasm
     Route: 065
     Dates: start: 20191211
  15. HYDROMORPHONE [Concomitant]
     Active Substance: HYDROMORPHONE
     Indication: Neoplasm
     Dosage: DOSE: AS NEEDED
     Route: 065
  16. Imodium/Loperamid [Concomitant]
     Indication: Prophylaxis
     Dosage: DOSE: AS NEEDED
     Route: 065
  17. Salbel (sage) [Concomitant]
     Indication: Neoplasm
     Dosage: DOSE: AS NEEDED MOUTH RINSES
     Route: 065
  18. PREGABALIN [Concomitant]
     Active Substance: PREGABALIN
     Indication: Neoplasm
     Route: 065
     Dates: start: 20200630

REACTIONS (1)
  - Neoplasm malignant [Fatal]

NARRATIVE: CASE EVENT DATE: 20210708
